FAERS Safety Report 9262943 (Version 1)
Quarter: 2013Q2

REPORT INFORMATION
  Report Type: Spontaneous
  Country: GB (occurrence: GB)
  Receive Date: 20130430
  Receipt Date: 20130430
  Transmission Date: 20140414
  Serious: Yes (Disabling)
  Sender: FDA-Public Use
  Company Number: ES-FOUGERA-2013FO000110

PATIENT
  Age: 58 Year
  Sex: Female
  Weight: 53.52 kg

DRUGS (1)
  1. SOLARAZE [Suspect]
     Indication: ACTINIC KERATOSIS
     Route: 061
     Dates: start: 20130322, end: 20130327

REACTIONS (3)
  - Skin burning sensation [Not Recovered/Not Resolved]
  - Erythema [Not Recovered/Not Resolved]
  - Skin exfoliation [Not Recovered/Not Resolved]
